FAERS Safety Report 15685951 (Version 2)
Quarter: 2019Q2

REPORT INFORMATION
  Report Type: Spontaneous
  Country: US (occurrence: US)
  Receive Date: 20181204
  Receipt Date: 20190506
  Transmission Date: 20190711
  Serious: Yes (Other)
  Sender: FDA-Public Use
  Company Number: US-SA-2018SA325669

PATIENT
  Age: 64 Year
  Sex: Female
  Weight: 85.27 kg

DRUGS (20)
  1. AMIODARONE [Concomitant]
     Active Substance: AMIODARONE
  2. ELIQUIS [Concomitant]
     Active Substance: APIXABAN
  3. NEOSAR [Concomitant]
     Active Substance: CYCLOPHOSPHAMIDE
  4. TRULICITY [Concomitant]
     Active Substance: DULAGLUTIDE
  5. NORVIR [Concomitant]
     Active Substance: RITONAVIR
     Dosage: UNK
     Dates: start: 2006
  6. CARVEDILOL. [Concomitant]
     Active Substance: CARVEDILOL
  7. TRUVADA [Concomitant]
     Active Substance: EMTRICITABINE\TENOFOVIR DISOPROXIL FUMARATE
     Dosage: UNK
     Dates: start: 2006
  8. TAXOTERE [Suspect]
     Active Substance: DOCETAXEL
     Indication: BREAST CANCER FEMALE
     Dosage: 50 MG, Q3W
     Route: 042
     Dates: start: 20131202, end: 20131202
  9. DEXAMETHASONE. [Concomitant]
     Active Substance: DEXAMETHASONE
  10. LEVEMIR [Concomitant]
     Active Substance: INSULIN DETEMIR
     Dosage: UNK
     Dates: start: 2006
  11. PROCHLORPERAZINE. [Concomitant]
     Active Substance: PROCHLORPERAZINE
  12. CYTOXAN [Concomitant]
     Active Substance: CYCLOPHOSPHAMIDE
  13. TAXOTERE [Suspect]
     Active Substance: DOCETAXEL
     Dosage: 50 MG, Q3W
     Route: 042
     Dates: start: 20140513, end: 20140513
  14. ADRIAMYCIN [Concomitant]
     Active Substance: DOXORUBICIN HYDROCHLORIDE
  15. LISINOPRIL. [Concomitant]
     Active Substance: LISINOPRIL
     Dosage: UNK
     Dates: start: 2006
  16. AMLODIPINE [Concomitant]
     Active Substance: AMLODIPINE BESYLATE
     Dosage: UNK
     Dates: start: 2006
  17. NYSTATIN. [Concomitant]
     Active Substance: NYSTATIN
  18. OMEPRAZOLE. [Concomitant]
     Active Substance: OMEPRAZOLE
  19. REYATAZ [Concomitant]
     Active Substance: ATAZANAVIR SULFATE
     Dosage: UNK
     Dates: start: 2006
  20. VICTOZA [Concomitant]
     Active Substance: LIRAGLUTIDE
     Dosage: UNK
     Dates: start: 2006

REACTIONS (2)
  - Psychological trauma [Unknown]
  - Alopecia [Not Recovered/Not Resolved]

NARRATIVE: CASE EVENT DATE: 201312
